FAERS Safety Report 9099838 (Version 1)
Quarter: 2013Q1

REPORT INFORMATION
  Report Type: Spontaneous
  Country: CH (occurrence: CH)
  Receive Date: 20130214
  Receipt Date: 20130214
  Transmission Date: 20140127
  Serious: Yes (Death, Other)
  Sender: FDA-Public Use
  Company Number: CH-TEVA-384768ISR

PATIENT
  Age: 77 Year
  Sex: Male

DRUGS (6)
  1. METHOTREXATE [Suspect]
     Indication: MYCOSIS FUNGOIDES
     Dosage: 10 MG/M2/WEEK; THEN INCREASED TO 25 MG/M2/WEEK
     Route: 042
     Dates: start: 200611
  2. METHOTREXATE [Suspect]
     Indication: MYCOSIS FUNGOIDES
     Dosage: RECEIVED 15 MG/M2/WEEK
     Route: 042
     Dates: start: 2008
  3. METHOTREXATE [Suspect]
     Indication: MYCOSIS FUNGOIDES
     Dosage: 7.5 MG/M2/WEEK
     Route: 042
     Dates: start: 2010
  4. CICLOSPORIN [Concomitant]
     Indication: MYCOSIS FUNGOIDES
     Route: 048
  5. CHLORAMBUCIL [Concomitant]
     Indication: MYCOSIS FUNGOIDES
     Route: 065
  6. INTERFERON ALPHA [Concomitant]
     Indication: MYCOSIS FUNGOIDES
     Route: 065

REACTIONS (7)
  - Epstein-Barr virus associated lymphoma [Recovering/Resolving]
  - Diffuse large B-cell lymphoma [Recovering/Resolving]
  - Pancytopenia [Unknown]
  - Necrotising retinitis [Unknown]
  - Diverticular perforation [Unknown]
  - Bladder transitional cell carcinoma [Unknown]
  - Death [Fatal]
